FAERS Safety Report 17447040 (Version 1)
Quarter: 2020Q1

REPORT INFORMATION
  Report Type: Spontaneous
  Country: TR (occurrence: TR)
  Receive Date: 20200221
  Receipt Date: 20200221
  Transmission Date: 20200409
  Serious: Yes (Other)
  Sender: FDA-Public Use
  Company Number: TR-ASTRAZENECA-2020SE23073

PATIENT
  Age: 35 Year
  Sex: Female

DRUGS (2)
  1. OLAPARIB. [Suspect]
     Active Substance: OLAPARIB
     Indication: OVARIAN EPITHELIAL CANCER
     Route: 048
     Dates: start: 201706
  2. AZACYTIDINE [Concomitant]
     Active Substance: AZACITIDINE

REACTIONS (2)
  - Haematotoxicity [Not Recovered/Not Resolved]
  - Myelodysplastic syndrome [Unknown]
